FAERS Safety Report 9661308 (Version 5)
Quarter: 2014Q3

REPORT INFORMATION
  Report Type: Report from Study
  Country: US (occurrence: US)
  Receive Date: 20131031
  Receipt Date: 20140814
  Transmission Date: 20150326
  Serious: Yes (Other)
  Sender: FDA-Public Use
  Company Number: US-SA-2013SA111211

PATIENT
  Age: 56 Year
  Sex: Female
  Weight: 140 kg

DRUGS (4)
  1. AUBAGIO [Suspect]
     Active Substance: TERIFLUNOMIDE
     Indication: RELAPSING-REMITTING MULTIPLE SCLEROSIS
     Route: 048
     Dates: start: 20130131
  2. COPAXONE [Concomitant]
     Active Substance: GLATIRAMER ACETATE
     Route: 065
  3. AUBAGIO [Suspect]
     Active Substance: TERIFLUNOMIDE
     Indication: RELAPSING-REMITTING MULTIPLE SCLEROSIS
     Route: 065
  4. TYSABRI [Concomitant]
     Active Substance: NATALIZUMAB

REACTIONS (6)
  - Breast cancer [Unknown]
  - Thirst [Recovering/Resolving]
  - Dry skin [Unknown]
  - Fall [Unknown]
  - Extra dose administered [Unknown]
  - Drug dose omission [Unknown]

NARRATIVE: CASE EVENT DATE: 201407
